FAERS Safety Report 5464779-2 (Version None)
Quarter: 2007Q3

REPORT INFORMATION
  Report Type: 
  Country: None (occurrence: None)
  Receive Date: 20070820
  Receipt Date: 20070716
  Transmission Date: 20080115
  Serious: No
  Sender: FDA-Public Use
  Company Number: TPA2007A01517

PATIENT
  Age: 64 Year
  Sex: Female
  Weight: 72.5755 kg

DRUGS (7)
  1. ROZEREM [Suspect]
     Indication: MIDDLE INSOMNIA
     Dosage: 8 MG, QHS, PER ORAL
     Route: 048
     Dates: start: 20070522
  2. ROZEREM [Suspect]
     Indication: SLEEP DISORDER DUE TO A GENERAL MEDICAL CONDITION
     Dosage: 8 MG, QHS, PER ORAL
     Route: 048
     Dates: start: 20070522
  3. ETODOLAC [Concomitant]
  4. PREVACID [Concomitant]
  5. ASTELIN [Concomitant]
  6. BROMFENEX PD (PSEUDEOPHEDRINE HYDROCHLORIDE, BROMPHENIRAMINE MALEATE) [Concomitant]
  7. ASPIRIN [Concomitant]

REACTIONS (2)
  - INITIAL INSOMNIA [None]
  - MIDDLE INSOMNIA [None]
